FAERS Safety Report 8243566-6 (Version None)
Quarter: 2012Q1

REPORT INFORMATION
  Report Type: 
  Country: None (occurrence: None)
  Receive Date: 20120329
  Receipt Date: 20120327
  Transmission Date: 20120608
  Serious: Yes (Death, Hospitalization, Other)
  Sender: FDA-Public Use
  Company Number: PHHY2012GT026228

PATIENT
  Age: 89 Year
  Sex: Female

DRUGS (4)
  1. ASPIRINITA [Concomitant]
     Dosage: UNK UKN, PRN
  2. CIBRAL [Concomitant]
     Dosage: 75 MG, UNK
     Route: 048
  3. DIOVAN [Suspect]
     Indication: HYPERTENSION
     Dosage: 80 MG, PER DAY
     Route: 048
  4. DIOVAN [Suspect]
     Indication: CARDIOMEGALY

REACTIONS (7)
  - PNEUMONIA [None]
  - ABASIA [None]
  - SPEECH DISORDER [None]
  - DEATH [None]
  - HAEMATURIA [None]
  - MUSCULAR WEAKNESS [None]
  - UNRESPONSIVE TO STIMULI [None]
